FAERS Safety Report 5634881-0 (Version None)
Quarter: 2008Q1

REPORT INFORMATION
  Report Type: 
  Country: None (occurrence: None)
  Receive Date: 20080222
  Receipt Date: 20080220
  Transmission Date: 20080703
  Serious: Yes (Hospitalization)
  Sender: FDA-Public Use
  Company Number: AU-ASTRAZENECA-2008AP01215

PATIENT
  Sex: Female

DRUGS (5)
  1. FELODIPINE [Suspect]
     Route: 048
  2. CLOPIDOGREL [Suspect]
     Route: 048
     Dates: end: 20070221
  3. MOBIC [Suspect]
     Route: 048
  4. MOGADON [Concomitant]
  5. OMEPRAZOLE [Concomitant]

REACTIONS (4)
  - FAECES DISCOLOURED [None]
  - HAEMATEMESIS [None]
  - MELAENA [None]
  - UPPER GASTROINTESTINAL HAEMORRHAGE [None]
